FAERS Safety Report 6216653-1 (Version None)
Quarter: 2009Q2

REPORT INFORMATION
  Report Type: 
  Country: None (occurrence: None)
  Receive Date: 20090605
  Receipt Date: 20090528
  Transmission Date: 20091009
  Serious: Yes (Hospitalization)
  Sender: FDA-Public Use
  Company Number: JP-ABBOTT-08P-087-0479431-00

PATIENT
  Sex: Female
  Weight: 45 kg

DRUGS (18)
  1. HUMIRA [Suspect]
     Indication: ANKYLOSING SPONDYLITIS
     Route: 058
     Dates: start: 20080507, end: 20080922
  2. LOXONIN [Concomitant]
     Indication: ANKYLOSING SPONDYLITIS
     Route: 048
     Dates: start: 20020101, end: 20080201
  3. LOXONIN [Concomitant]
     Dates: end: 20081114
  4. MOBIC [Concomitant]
     Indication: ANKYLOSING SPONDYLITIS
     Route: 048
     Dates: start: 20080202, end: 20080324
  5. MOBIC [Concomitant]
     Route: 048
     Dates: start: 20080325, end: 20080910
  6. PROPOFOL [Concomitant]
     Indication: PREOPERATIVE CARE
     Route: 042
     Dates: start: 20081002, end: 20081002
  7. RASENAZOLIN [Concomitant]
     Indication: INFECTION PROPHYLAXIS
     Route: 042
     Dates: start: 20081002, end: 20081002
  8. BISOLVON [Concomitant]
     Indication: PRODUCTIVE COUGH
     Route: 055
     Dates: start: 20081001
  9. BISOLVON [Concomitant]
     Route: 055
     Dates: start: 20081016, end: 20081017
  10. BISOLVON [Concomitant]
     Route: 055
     Dates: start: 20081020, end: 20081020
  11. HYPERBASIC OXYGEN THERAPY [Concomitant]
     Indication: INTERVERTEBRAL DISCITIS
     Dates: start: 20081003
  12. HYPERBASIC OXYGEN THERAPY [Concomitant]
     Indication: OSTEOMYELITIS
  13. XYLOCAINE [Concomitant]
     Indication: SEDATIVE THERAPY
     Route: 061
     Dates: start: 20081002, end: 20081002
  14. LACTEC [Concomitant]
     Indication: FLUID REPLACEMENT
     Route: 042
     Dates: start: 20081002, end: 20081003
  15. ALFAROL [Concomitant]
     Indication: OSTEOPOROSIS
     Route: 048
     Dates: start: 20081021
  16. BONALON [Concomitant]
     Indication: OSTEOPOROSIS
     Route: 048
     Dates: start: 20081021
  17. OMNISCAN [Concomitant]
     Indication: FLUID REPLACEMENT
     Route: 042
     Dates: start: 20081015, end: 20081015
  18. REBAMIPIDE [Concomitant]
     Indication: PROPHYLAXIS AGAINST GASTROINTESTINAL ULCER
     Dosage: 6 QM
     Route: 048
     Dates: start: 20080101, end: 20081114

REACTIONS (2)
  - INTERVERTEBRAL DISCITIS [None]
  - OSTEOMYELITIS [None]
